FAERS Safety Report 25521155 (Version 1)
Quarter: 2025Q3

REPORT INFORMATION
  Report Type: Spontaneous
  Country: US (occurrence: US)
  Receive Date: 20250705
  Receipt Date: 20250705
  Transmission Date: 20251020
  Serious: Yes (Death, Life-Threatening, Hospitalization, Other)
  Sender: AUROBINDO
  Company Number: US-MLMSERVICE-20250613-PI543444-00029-1

PATIENT
  Age: 21 Year
  Sex: Male

DRUGS (4)
  1. ACETAMINOPHEN [Suspect]
     Active Substance: ACETAMINOPHEN
     Indication: Product used for unknown indication
     Route: 048
     Dates: start: 202310
  2. BUPROPION [Concomitant]
     Active Substance: BUPROPION
     Indication: Product used for unknown indication
     Route: 048
     Dates: start: 202310
  3. OLANZAPINE [Concomitant]
     Active Substance: OLANZAPINE
     Indication: Product used for unknown indication
     Dosage: 5 MILLIGRAM, ONCE A DAY
     Route: 048
  4. FLUOXETINE [Concomitant]
     Active Substance: FLUOXETINE HYDROCHLORIDE
     Indication: Product used for unknown indication
     Dosage: 20 MILLIGRAM, ONCE A DAY
     Route: 048

REACTIONS (10)
  - Multiple organ dysfunction syndrome [Fatal]
  - Lactic acidosis [Fatal]
  - Cardiac failure congestive [Fatal]
  - Pulmonary oedema [Fatal]
  - Liver injury [Fatal]
  - Renal failure [Fatal]
  - Pleural effusion [Fatal]
  - Methaemoglobinaemia [Fatal]
  - Intentional overdose [Fatal]
  - Generalised tonic-clonic seizure [Recovering/Resolving]

NARRATIVE: CASE EVENT DATE: 20231001
